FAERS Safety Report 5557421-3 (Version None)
Quarter: 2007Q4

REPORT INFORMATION
  Report Type: 
  Country: None (occurrence: None)
  Receive Date: 20071214
  Receipt Date: 20071210
  Transmission Date: 20080405
  Serious: Yes (Hospitalization)
  Sender: FDA-Public Use
  Company Number: US-SANOFI-SYNTHELABO-F03200700210

PATIENT
  Age: 73 Year
  Sex: Male
  Weight: 35.8 kg

DRUGS (15)
  1. BEVACIZUMAB [Suspect]
     Indication: OESOPHAGEAL CARCINOMA
     Route: 042
  2. CAPECITABINE [Suspect]
     Indication: OESOPHAGEAL CARCINOMA
     Route: 048
     Dates: start: 20070831
  3. OXALIPLATIN [Suspect]
     Indication: OESOPHAGEAL CARCINOMA
     Route: 042
  4. IMODIUM [Concomitant]
     Dosage: UNK
     Route: 048
  5. REGLAN [Concomitant]
     Dosage: UNK
     Route: 048
  6. NORVASC [Concomitant]
     Dosage: UNK
     Route: 048
  7. LIPITOR [Concomitant]
     Dosage: UNK
     Route: 048
  8. MEGACE [Concomitant]
     Dosage: UNK
     Route: 065
  9. NYSTATIN [Concomitant]
     Dosage: UNK
     Route: 065
  10. LOVENOX [Concomitant]
     Dosage: UNK
     Route: 065
  11. ATIVAN [Concomitant]
     Dosage: UNK
     Route: 048
  12. COLCHICINE [Concomitant]
     Dosage: UNK
     Route: 048
  13. LISINOPRIL [Concomitant]
     Dosage: UNK
     Route: 048
  14. ACEBUTOLOL [Concomitant]
     Dosage: UNK
     Route: 065
  15. PROCAINAMIDE [Concomitant]
     Dosage: UNK
     Route: 065

REACTIONS (4)
  - ATRIAL FIBRILLATION [None]
  - CONDITION AGGRAVATED [None]
  - FATIGUE [None]
  - MELAENA [None]
